FAERS Safety Report 8849225 (Version 1)
Quarter: 2012Q4

REPORT INFORMATION
  Report Type: Report from Study
  Country: CA (occurrence: CA)
  Receive Date: 20121019
  Receipt Date: 20121019
  Transmission Date: 20130627
  Serious: Yes (Other)
  Sender: FDA-Public Use
  Company Number: CA-JNJFOC-20121006704

PATIENT
  Sex: Male
  Weight: 63.5 kg

DRUGS (1)
  1. REMICADE [Suspect]
     Indication: CROHN^S DISEASE
     Route: 042

REACTIONS (6)
  - Gastrointestinal inflammation [Unknown]
  - Faecal incontinence [Unknown]
  - Cystitis [Unknown]
  - Prostate infection [Unknown]
  - Eating disorder [Recovering/Resolving]
  - Malaise [Unknown]
